FAERS Safety Report 15604687 (Version 1)
Quarter: 2018Q4

REPORT INFORMATION
  Report Type: Spontaneous
  Country: US (occurrence: US)
  Receive Date: 20181109
  Receipt Date: 20181109
  Transmission Date: 20190205
  Serious: No
  Sender: FDA-Public Use
  Company Number: None

PATIENT
  Age: 33 Month
  Sex: Female
  Weight: 13.95 kg

DRUGS (1)
  1. MIRALAX [Suspect]
     Active Substance: POLYETHYLENE GLYCOL 3350
     Indication: CONSTIPATION
     Route: 048
     Dates: start: 20181001, end: 20181101

REACTIONS (4)
  - Muscle twitching [None]
  - Anger [None]
  - Abnormal behaviour [None]
  - Aggression [None]

NARRATIVE: CASE EVENT DATE: 20181010
